FAERS Safety Report 21294764 (Version 3)
Quarter: 2023Q2

REPORT INFORMATION
  Report Type: Spontaneous
  Country: US (occurrence: US)
  Receive Date: 20220905
  Receipt Date: 20230419
  Transmission Date: 20230722
  Serious: No
  Sender: FDA-Public Use
  Company Number: US-BRISTOL-MYERS SQUIBB COMPANY-2022-100923

PATIENT
  Age: 64 Year
  Sex: Male
  Weight: 69.399 kg

DRUGS (2)
  1. POMALYST [Suspect]
     Active Substance: POMALIDOMIDE
     Indication: Plasma cell myeloma
     Dosage: 4 MILLIGRAM, D 1-21 Q 28 DAYS
     Route: 048
     Dates: start: 20211207
  2. POMALYST [Suspect]
     Active Substance: POMALIDOMIDE
     Dosage: FREQ: D1-21 Q 28 DAYS
     Route: 048
     Dates: start: 20211207

REACTIONS (2)
  - Blood potassium decreased [Not Recovered/Not Resolved]
  - Liver function test abnormal [Recovered/Resolved]
